FAERS Safety Report 18287014 (Version 2)
Quarter: 2020Q4

REPORT INFORMATION
  Report Type: Report from Study
  Country: None (occurrence: US)
  Receive Date: 20200921
  Receipt Date: 20201028
  Transmission Date: 20210113
  Serious: Yes (Other)
  Sender: FDA-Public Use
  Company Number: US-ABBVIE-20K-163-3567233-00

PATIENT
  Age: 79 Year
  Sex: Female

DRUGS (1)
  1. HUMIRA [Suspect]
     Active Substance: ADALIMUMAB
     Indication: RHEUMATOID ARTHRITIS
     Dosage: CITRATE FREE
     Route: 058

REACTIONS (8)
  - Contusion [Unknown]
  - Hernia [Not Recovered/Not Resolved]
  - Head injury [Unknown]
  - Knee arthroplasty [Not Recovered/Not Resolved]
  - Rheumatoid arthritis [Not Recovered/Not Resolved]
  - Facial bones fracture [Unknown]
  - Peripheral swelling [Unknown]
  - Fall [Unknown]

NARRATIVE: CASE EVENT DATE: 20200914
